FAERS Safety Report 7653687-4 (Version None)
Quarter: 2011Q3

REPORT INFORMATION
  Report Type: 
  Country: None (occurrence: None)
  Receive Date: 20110803
  Receipt Date: 20090129
  Transmission Date: 20111222
  Serious: Yes (Hospitalization)
  Sender: FDA-Public Use
  Company Number: US-GLAXOSMITHKLINE-A0766926A

PATIENT
  Age: 43 Year
  Sex: Male

DRUGS (1)
  1. AVANDIA [Suspect]
     Indication: DIABETES MELLITUS
     Dosage: 8MG PER DAY
     Route: 048
     Dates: start: 20031219, end: 20070902

REACTIONS (5)
  - CHEST PAIN [None]
  - LUNG DISORDER [None]
  - MYOCARDIAL INFARCTION [None]
  - CHRONIC OBSTRUCTIVE PULMONARY DISEASE [None]
  - LIVER DISORDER [None]
